FAERS Safety Report 10083837 (Version 1)
Quarter: 2014Q2

REPORT INFORMATION
  Report Type: Spontaneous
  Country: GB (occurrence: None)
  Receive Date: 20140415
  Receipt Date: 20140415
  Transmission Date: 20141212
  Serious: Yes (Other)
  Sender: FDA-Public Use
  Company Number: AUR-APL-2014-04284

PATIENT
  Age: 49 Year
  Sex: Female
  Weight: 74 kg

DRUGS (6)
  1. FLUOXETINE [Suspect]
     Indication: PRODUCT USED FOR UNKNOWN INDICATION
     Dates: start: 20140304
  2. BECONASE (BECLOMETASONE DIPROPIONATE) [Concomitant]
  3. CITALOPRAM (CITALOPRAM) [Concomitant]
  4. FLUTICASONE FUROATE (FLUTICASONE FUROATE) [Concomitant]
  5. NAPROXEN (NAPROXEN) [Concomitant]
  6. OMEPRAZOLE (OMEPRAZOLE) [Concomitant]

REACTIONS (1)
  - Muscle twitching [None]
